FAERS Safety Report 25390265 (Version 2)
Quarter: 2025Q3

REPORT INFORMATION
  Report Type: Spontaneous
  Country: US (occurrence: US)
  Receive Date: 20250603
  Receipt Date: 20250724
  Transmission Date: 20251020
  Serious: No
  Sender: PFIZER
  Company Number: US-PFIZER INC-202500110660

PATIENT
  Age: 10 Year
  Sex: Female
  Weight: 24 kg

DRUGS (1)
  1. GENOTROPIN [Suspect]
     Active Substance: SOMATROPIN
     Indication: Small for dates baby
     Dosage: 1.7MG DAILY, ROTATE PLACES, IN THIGHS OR BUTTOCKS
     Dates: start: 20250523

REACTIONS (3)
  - Wrong technique in device usage process [Unknown]
  - Device mechanical issue [Unknown]
  - Drug dose omission by device [Unknown]
